FAERS Safety Report 9790822 (Version 3)
Quarter: 2014Q2

REPORT INFORMATION
  Report Type: Spontaneous
  Country: US (occurrence: US)
  Receive Date: 20131231
  Receipt Date: 20140521
  Transmission Date: 20141212
  Serious: Yes (Other)
  Sender: FDA-Public Use
  Company Number: PHEH2013US026487

PATIENT
  Age: 53 Year
  Sex: Male

DRUGS (8)
  1. DIOVAN [Suspect]
     Indication: HYPERTENSION
     Dosage: 320 MG, QD
     Route: 048
  2. LISINOPRIL [Suspect]
     Indication: HYPERTENSION
     Dosage: UNK UKN, UNK
  3. LYRICA [Concomitant]
     Dosage: UNK UKN, UNK
  4. ALLOPURINOL [Concomitant]
     Indication: GOUT
     Dosage: 300 MG, UNK
  5. DILTIAZEM [Concomitant]
     Dosage: UNK UKN, UNK
  6. PREDNISOLON [Concomitant]
     Indication: GOUT
     Dosage: 2 DF, (20 MG)
  7. PREDNISOLON [Concomitant]
     Dosage: 2 DF, (40 MG)
     Route: 048
  8. IBUPROFEN [Concomitant]
     Indication: GOUT
     Dosage: 4 DF, PRN (200 MG)
     Route: 048

REACTIONS (15)
  - Diabetes mellitus [Unknown]
  - Benign prostatic hyperplasia [Unknown]
  - Deafness unilateral [Unknown]
  - Umbilical hernia [Unknown]
  - Blood pressure increased [Unknown]
  - Weight increased [Unknown]
  - Visual impairment [Unknown]
  - Obesity [Unknown]
  - Glycosylated haemoglobin decreased [Unknown]
  - Orthopnoea [Unknown]
  - Hypoaesthesia [Unknown]
  - Dyspnoea [Unknown]
  - Dyspnoea exertional [Unknown]
  - Dyspnoea paroxysmal nocturnal [Unknown]
  - Dizziness [Unknown]
